FAERS Safety Report 18370627 (Version 1)
Quarter: 2020Q4

REPORT INFORMATION
  Report Type: Spontaneous
  Country: US (occurrence: US)
  Receive Date: 20201012
  Receipt Date: 20201012
  Transmission Date: 20210114
  Serious: Yes (Hospitalization, Other)
  Sender: FDA-Public Use
  Company Number: US-JNJFOC-20170415329

PATIENT
  Age: 28 Year
  Sex: Male

DRUGS (4)
  1. IMODIUM [Suspect]
     Active Substance: LOPERAMIDE HYDROCHLORIDE
     Indication: DRUG ABUSE
     Route: 065
  2. PRAZOSIN. [Concomitant]
     Active Substance: PRAZOSIN
     Route: 065
  3. QUETIAPINE. [Concomitant]
     Active Substance: QUETIAPINE
     Route: 065
  4. FLUOXETINE [Concomitant]
     Active Substance: FLUOXETINE HYDROCHLORIDE
     Route: 065

REACTIONS (5)
  - Ventricular tachycardia [Recovered/Resolved]
  - Hypertrophic cardiomyopathy [Unknown]
  - Sinus bradycardia [Unknown]
  - Electrocardiogram QT prolonged [Recovered/Resolved]
  - Drug abuse [Unknown]
